FAERS Safety Report 8971311 (Version 1)
Quarter: 2012Q4

REPORT INFORMATION
  Report Type: 
  Country: CA (occurrence: CA)
  Receive Date: 20121218
  Receipt Date: 20121218
  Transmission Date: 20130627
  Serious: Yes (Other)
  Sender: FDA-Public Use
  Company Number: CA-AMGEN-CANSP2012076459

PATIENT
  Age: 68 Year
  Sex: Female
  Weight: 86 kg

DRUGS (2)
  1. XGEVA [Suspect]
     Indication: BREAST CANCER METASTATIC
     Dosage: UNK UNK, qmo
     Route: 058
     Dates: start: 20120207
  2. FEMARA [Suspect]
     Indication: BREAST CANCER METASTATIC
     Dosage: 25 mug, qd
     Route: 048
     Dates: start: 2011

REACTIONS (6)
  - Fall [Recovering/Resolving]
  - Clavicle fracture [Recovering/Resolving]
  - Radius fracture [Recovering/Resolving]
  - Ankle fracture [Recovering/Resolving]
  - Laceration [Recovering/Resolving]
  - Anxiety [Recovering/Resolving]
